FAERS Safety Report 12917447 (Version 1)
Quarter: 2016Q4

REPORT INFORMATION
  Report Type: Spontaneous
  Country: VE (occurrence: VE)
  Receive Date: 20161107
  Receipt Date: 20161107
  Transmission Date: 20170207
  Serious: Yes (Other)
  Sender: FDA-Public Use
  Company Number: VE-PFIZER INC-2016513853

PATIENT
  Sex: Female

DRUGS (1)
  1. EPAMIN [Suspect]
     Active Substance: PHENYTOIN SODIUM
     Dosage: 50 MG, UNK

REACTIONS (1)
  - Seizure [Not Recovered/Not Resolved]
